APPROVED DRUG PRODUCT: ANORO ELLIPTA
Active Ingredient: UMECLIDINIUM BROMIDE; VILANTEROL TRIFENATATE
Strength: EQ 0.0625MG BASE/INH;EQ 0.025MG BASE/INH
Dosage Form/Route: POWDER;INHALATION
Application: N203975 | Product #001
Applicant: GLAXOSMITHKLINE INTELLECTUAL PROPERTY DEVELOPMENT LTD ENGLAND
Approved: Dec 18, 2013 | RLD: Yes | RS: Yes | Type: RX

PATENTS:
Patent 11090294 | Expires: Nov 29, 2030
Patent 8511304 | Expires: Jun 14, 2027
Patent 9750726 | Expires: Nov 29, 2030
Patent 7488827 | Expires: Dec 18, 2027
Patent 12396986 | Expires: Nov 29, 2030
Patent 8511304*PED | Expires: Dec 14, 2027